FAERS Safety Report 15396650 (Version 2)
Quarter: 2018Q4

REPORT INFORMATION
  Report Type: Report from Study
  Country: US (occurrence: US)
  Receive Date: 20180918
  Receipt Date: 20181008
  Transmission Date: 20190204
  Serious: Yes (Hospitalization)
  Sender: FDA-Public Use
  Company Number: US-CELGENEUS-USA-20180905794

PATIENT
  Age: 72 Year
  Sex: Female
  Weight: 65.5 kg

DRUGS (2)
  1. AG-221 [Suspect]
     Active Substance: ENASIDENIB
     Dosage: 100 MILLIGRAM
     Route: 048
     Dates: start: 20180904
  2. AG-221 [Suspect]
     Active Substance: ENASIDENIB
     Indication: ACUTE MYELOID LEUKAEMIA
     Dosage: 100 MILLIGRAM
     Route: 048
     Dates: start: 20180830

REACTIONS (1)
  - Diarrhoea [Recovered/Resolved]

NARRATIVE: CASE EVENT DATE: 20180904
